FAERS Safety Report 7117102-1 (Version None)
Quarter: 2010Q4

REPORT INFORMATION
  Report Type: 
  Country: None (occurrence: None)
  Receive Date: 20101122
  Receipt Date: 20101116
  Transmission Date: 20110411
  Serious: Yes (Hospitalization)
  Sender: FDA-Public Use
  Company Number: IT-PFIZER INC-2010135211

PATIENT
  Age: 62 Year
  Sex: Male
  Weight: 80 kg

DRUGS (3)
  1. SUTENT [Suspect]
     Indication: PANCREATIC CARCINOMA METASTATIC
     Dosage: 37.5 MG, 1X/DAY
     Route: 048
     Dates: start: 20101013, end: 20101017
  2. PANCREX [Concomitant]
     Indication: PANCREATIC INSUFFICIENCY
     Dosage: 1020 MG, 1X/DAY
     Route: 048
     Dates: start: 20050101
  3. MEPRAL [Concomitant]
     Indication: GASTRITIS
     Dosage: 20 MG, UNK
     Route: 048
     Dates: start: 20090101

REACTIONS (1)
  - RENAL FAILURE ACUTE [None]
